FAERS Safety Report 7086769-9 (Version None)
Quarter: 2010Q4

REPORT INFORMATION
  Report Type: 
  Country: None (occurrence: None)
  Receive Date: 20101105
  Receipt Date: 20101101
  Transmission Date: 20110411
  Serious: Yes (Life-Threatening, Hospitalization, Other)
  Sender: FDA-Public Use
  Company Number: DE-ABBOTT-10P-062-0652101-00

PATIENT
  Sex: Male

DRUGS (5)
  1. HUMIRA [Suspect]
     Indication: CROHN'S DISEASE
     Route: 058
     Dates: start: 20100305, end: 20100910
  2. HUMIRA [Suspect]
     Indication: RHEUMATOID ARTHRITIS
  3. PENTASA [Concomitant]
     Indication: PRODUCT USED FOR UNKNOWN INDICATION
  4. LIMIPIRID [Concomitant]
     Indication: PRODUCT USED FOR UNKNOWN INDICATION
  5. ANTIDIABETIC DRUG [Concomitant]
     Indication: DIABETES MELLITUS

REACTIONS (2)
  - IMPAIRED HEALING [None]
  - INTESTINAL PERFORATION [None]
